FAERS Safety Report 23403831 (Version 3)
Quarter: 2024Q1

REPORT INFORMATION
  Report Type: Spontaneous
  Country: PT (occurrence: PT)
  Receive Date: 20240116
  Receipt Date: 20240302
  Transmission Date: 20240410
  Serious: Yes (Hospitalization, Other)
  Sender: FDA-Public Use
  Company Number: PT-CELLTRION INC.-2024PT000877

PATIENT

DRUGS (30)
  1. RITUXIMAB [Suspect]
     Active Substance: RITUXIMAB
     Indication: Diffuse large B-cell lymphoma stage IV
     Dosage: FIRST CYCLE
     Dates: start: 202101
  2. RITUXIMAB [Suspect]
     Active Substance: RITUXIMAB
     Dosage: SECOND CYCLE
  3. RITUXIMAB [Suspect]
     Active Substance: RITUXIMAB
     Dosage: THIRD CYCLE
     Dates: start: 202103
  4. RITUXIMAB [Suspect]
     Active Substance: RITUXIMAB
     Dosage: FOURTH CYCLE
     Dates: start: 202104
  5. RITUXIMAB [Suspect]
     Active Substance: RITUXIMAB
     Dosage: FIFTH CYCLE
  6. RITUXIMAB [Suspect]
     Active Substance: RITUXIMAB
     Dosage: SIXTH CYCLE
  7. CYCLOPHOSPHAMIDE [Suspect]
     Active Substance: CYCLOPHOSPHAMIDE
     Indication: Diffuse large B-cell lymphoma stage IV
     Dosage: FIRST CYCLE
     Dates: start: 202101
  8. CYCLOPHOSPHAMIDE [Suspect]
     Active Substance: CYCLOPHOSPHAMIDE
     Dosage: SECOND CYCLE
  9. CYCLOPHOSPHAMIDE [Suspect]
     Active Substance: CYCLOPHOSPHAMIDE
     Dosage: THIRD CYCLE
     Dates: start: 202103
  10. CYCLOPHOSPHAMIDE [Suspect]
     Active Substance: CYCLOPHOSPHAMIDE
     Dosage: FOURTH CYCLE
     Dates: start: 202104
  11. CYCLOPHOSPHAMIDE [Suspect]
     Active Substance: CYCLOPHOSPHAMIDE
     Dosage: FIFTH CYCLE
  12. CYCLOPHOSPHAMIDE [Suspect]
     Active Substance: CYCLOPHOSPHAMIDE
     Dosage: SIXTH CYCLE
  13. DOXORUBICIN [Suspect]
     Active Substance: DOXORUBICIN
     Indication: Diffuse large B-cell lymphoma stage IV
     Dosage: FIRST CYCLE
     Dates: start: 202101
  14. DOXORUBICIN [Suspect]
     Active Substance: DOXORUBICIN
     Dosage: SECOND CYCLE
  15. DOXORUBICIN [Suspect]
     Active Substance: DOXORUBICIN
     Dosage: THIRD CYCLE
     Dates: start: 202103
  16. DOXORUBICIN [Suspect]
     Active Substance: DOXORUBICIN
     Dosage: FOURTH CYCLE
     Dates: start: 202104
  17. DOXORUBICIN [Suspect]
     Active Substance: DOXORUBICIN
     Dosage: FIFTH CYCLE
  18. DOXORUBICIN [Suspect]
     Active Substance: DOXORUBICIN
     Dosage: SIXTH CYCLE
  19. VINCRISTINE [Suspect]
     Active Substance: VINCRISTINE
     Indication: Diffuse large B-cell lymphoma stage IV
     Dosage: FIRST CYCLE
     Dates: start: 202101
  20. VINCRISTINE [Suspect]
     Active Substance: VINCRISTINE
     Dosage: SECOND CYCLE
  21. VINCRISTINE [Suspect]
     Active Substance: VINCRISTINE
     Dosage: THIRD CYCLE
     Dates: start: 202103
  22. VINCRISTINE [Suspect]
     Active Substance: VINCRISTINE
     Dosage: FOURTH CYCLE
     Dates: start: 202104
  23. VINCRISTINE [Suspect]
     Active Substance: VINCRISTINE
     Dosage: FIFTH CYCLE
  24. VINCRISTINE [Suspect]
     Active Substance: VINCRISTINE
     Dosage: SIXTH CYCLE
  25. PREDNISONE [Suspect]
     Active Substance: PREDNISONE
     Indication: Diffuse large B-cell lymphoma stage IV
     Dosage: FIRST CYCLE
     Dates: start: 202101
  26. PREDNISONE [Suspect]
     Active Substance: PREDNISONE
     Dosage: SECOND CYCLE
  27. PREDNISONE [Suspect]
     Active Substance: PREDNISONE
     Dosage: THIRD CYCLE
     Dates: start: 202103
  28. PREDNISONE [Suspect]
     Active Substance: PREDNISONE
     Dosage: FOURTH CYCLE
     Dates: start: 202104
  29. PREDNISONE [Suspect]
     Active Substance: PREDNISONE
     Dosage: FIFTH CYCLE
  30. PREDNISONE [Suspect]
     Active Substance: PREDNISONE
     Dosage: SIXTH CYCLE

REACTIONS (6)
  - COVID-19 [Recovered/Resolved]
  - Neutropenia [Recovered/Resolved]
  - Pancytopenia [Recovered/Resolved]
  - Leukopenia [Recovered/Resolved]
  - Respiratory failure [Recovered/Resolved]
  - Off label use [Unknown]

NARRATIVE: CASE EVENT DATE: 20210101
